FAERS Safety Report 6653652-X (Version None)
Quarter: 2010Q1

REPORT INFORMATION
  Report Type: 
  Country: None (occurrence: None)
  Receive Date: 20100326
  Receipt Date: 20081121
  Transmission Date: 20100710
  Serious: Yes (Death)
  Sender: FDA-Public Use
  Company Number: IN-PFIZER INC-2008093911

PATIENT
  Age: 64 Year
  Sex: Female
  Weight: 78 kg

DRUGS (12)
  1. IRINOTECAN HCL [Suspect]
     Indication: COLORECTAL CANCER METASTATIC
     Dosage: 274 MG, EVERY 3 WEEKS
     Route: 042
     Dates: start: 20080804, end: 20081022
  2. BLINDED *NO SUBJECT DRUG [Suspect]
     Indication: COLORECTAL CANCER METASTATIC
     Dosage: 37.5 MG, 1X/DAY
     Route: 048
     Dates: start: 20080804, end: 20081019
  3. BLINDED *PLACEBO [Suspect]
     Indication: COLORECTAL CANCER METASTATIC
     Dosage: 37.5 MG, 1X/DAY
     Route: 048
     Dates: start: 20080804, end: 20081019
  4. BLINDED SUNITINIB MALATE [Suspect]
     Indication: COLORECTAL CANCER METASTATIC
     Dosage: 37.5 MG, 1X/DAY
     Route: 048
     Dates: start: 20080804, end: 20081019
  5. *CALCIUM FOLINATE [Suspect]
     Indication: COLORECTAL CANCER METASTATIC
     Dosage: 300 MG, EVERY 3 WEEKS
     Route: 042
     Dates: start: 20080804, end: 20081022
  6. *FLUOROURACIL [Suspect]
     Indication: COLORECTAL CANCER METASTATIC
     Dosage: 4208 MG, EVERY 3 WEEKS, BOLUS + MAINTAINANCE
     Route: 042
     Dates: start: 20080804, end: 20081024
  7. NORFLOXACIN [Concomitant]
     Route: 048
     Dates: start: 20081003, end: 20081008
  8. MULTI-VITAMINS [Concomitant]
     Route: 048
     Dates: start: 20081003, end: 20081008
  9. DISODIUM HYDROGEN CITRATE [Concomitant]
     Route: 048
     Dates: start: 20081003, end: 20081008
  10. PANTOPRAZOLE [Concomitant]
     Route: 048
     Dates: start: 20080804
  11. MAGNESIUM OXIDE [Concomitant]
     Route: 048
     Dates: start: 20080804
  12. CODEINE SULFATE [Concomitant]
     Route: 048
     Dates: start: 20081101

REACTIONS (1)
  - DEATH [None]
